FAERS Safety Report 18408824 (Version 2)
Quarter: 2020Q4

REPORT INFORMATION
  Report Type: Spontaneous
  Country: GB (occurrence: GB)
  Receive Date: 20201021
  Receipt Date: 20201027
  Transmission Date: 20210114
  Serious: Yes (Hospitalization)
  Sender: FDA-Public Use
  Company Number: GB-TEVA-2020-GB-1839724

PATIENT
  Age: 59 Year
  Sex: Male
  Weight: 72 kg

DRUGS (10)
  1. LANSOPRAZOLE. [Suspect]
     Active Substance: LANSOPRAZOLE
     Dosage: 30MG
     Route: 048
     Dates: start: 20200912
  2. PARACETAMOL [Concomitant]
     Active Substance: ACETAMINOPHEN
  3. THIAMINE. [Concomitant]
     Active Substance: THIAMINE
  4. FUROSEMIDE. [Suspect]
     Active Substance: FUROSEMIDE
     Dosage: 40MG
     Route: 048
     Dates: start: 20200912
  5. METOCLOPRAMIDE. [Concomitant]
     Active Substance: METOCLOPRAMIDE
  6. DERMOL [Concomitant]
     Active Substance: BENZALKONIUM CHLORIDE\CHLORHEXIDINE HYDROCHLORIDE\ISOPROPYL MYRISTATE\PARAFFIN
  7. SPIRONOLACTONE. [Suspect]
     Active Substance: SPIRONOLACTONE
     Dosage: 300MG
     Route: 048
     Dates: start: 20200912
  8. PREGABALIN. [Suspect]
     Active Substance: PREGABALIN
     Dosage: 50MG
     Route: 048
     Dates: start: 20200912
  9. AMITRIPTYLINE [Suspect]
     Active Substance: AMITRIPTYLINE
     Dosage: 20MG
     Route: 048
     Dates: start: 20200912
  10. FENTANYL. [Concomitant]
     Active Substance: FENTANYL

REACTIONS (4)
  - Dehydration [Unknown]
  - Hyponatraemia [Not Recovered/Not Resolved]
  - Constipation [Unknown]
  - Hepatic encephalopathy [Unknown]

NARRATIVE: CASE EVENT DATE: 20200912
